FAERS Safety Report 5451419-1 (Version None)
Quarter: 2007Q3

REPORT INFORMATION
  Report Type: 
  Country: None (occurrence: None)
  Receive Date: 20070913
  Receipt Date: 20070910
  Transmission Date: 20080115
  Serious: No
  Sender: FDA-Public Use
  Company Number: B0479221A

PATIENT
  Age: 79 Year
  Sex: Female
  Weight: 72 kg

DRUGS (6)
  1. AVANDIA [Suspect]
     Route: 065
     Dates: start: 20060317
  2. PREVISCAN [Concomitant]
     Route: 065
  3. SOPROL [Concomitant]
     Route: 065
  4. STILNOX [Concomitant]
     Route: 065
  5. LEVOTHYROX [Concomitant]
     Route: 065
  6. LEXOMIL [Concomitant]
     Route: 065

REACTIONS (2)
  - DRUG ADMINISTRATION ERROR [None]
  - VERTIGO [None]
